FAERS Safety Report 20688478 (Version 2)
Quarter: 2024Q1

REPORT INFORMATION
  Report Type: Spontaneous
  Country: US (occurrence: US)
  Receive Date: 20220408
  Receipt Date: 20240229
  Transmission Date: 20240410
  Serious: No
  Sender: FDA-Public Use
  Company Number: US-GLAND PHARMA LIMITED-2021US003897

PATIENT

DRUGS (1)
  1. MIDAZOLAM [Suspect]
     Active Substance: MIDAZOLAM
     Indication: Product used for unknown indication
     Dosage: 2 MG/2 ML UNK
     Route: 065

REACTIONS (2)
  - Drug ineffective [Unknown]
  - Product complaint [Unknown]
